FAERS Safety Report 5099157-1 (Version None)
Quarter: 2006Q3

REPORT INFORMATION
  Report Type: 
  Country: None (occurrence: None)
  Receive Date: 20060728
  Receipt Date: 20060530
  Transmission Date: 20061208
  Serious: No
  Sender: FDA-Public Use
  Company Number: COT_0427_2006

PATIENT
  Age: 40 Year
  Sex: Female
  Weight: 61.6892 kg

DRUGS (18)
  1. VENTAVIS [Suspect]
     Indication: PULMONARY HYPERTENSION
     Dosage: 2.5 MCG ONCE IH
     Route: 055
     Dates: start: 20051229, end: 20051229
  2. VENTAVIS [Suspect]
     Indication: PULMONARY HYPERTENSION
     Dosage: 5 MCG 6TO9X/DAY IH
     Route: 055
     Dates: start: 20051229, end: 20060130
  3. VENTAVIS [Suspect]
     Indication: PULMONARY HYPERTENSION
     Dosage: 2.5 MCG 6XD IH
     Route: 055
     Dates: start: 20060131
  4. VENTAVIS [Suspect]
     Indication: PULMONARY HYPERTENSION
     Dosage: 2.5 MCG 4-6X/DAY IH
     Route: 055
  5. VENTAVIS [Suspect]
     Indication: PULMONARY HYPERTENSION
     Dosage: 2.5 MCG 4 TIMES A DAY IH
     Route: 055
  6. VENTAVIS [Suspect]
     Indication: PULMONARY HYPERTENSION
     Dosage: 2.5 MCG 3-4X/DAY IH
     Route: 055
  7. NEXIUM [Concomitant]
  8. TRACLEER [Concomitant]
  9. MEGESTROL ACETATE [Concomitant]
  10. ZELNORM [Concomitant]
  11. METOCLOPRAMIDE HCL [Concomitant]
  12. SILDENAFIL [Concomitant]
  13. SPIRONOLACTONE [Concomitant]
  14. CLARINEX [Concomitant]
  15. SINGULAIR [Concomitant]
  16. ZYRTEC [Concomitant]
  17. FUROSEMIDE [Concomitant]
  18. POTASSIUM CHLORIDE [Concomitant]

REACTIONS (5)
  - COUGH [None]
  - FLUSHING [None]
  - HEADACHE [None]
  - PAIN IN JAW [None]
  - PHARYNGOLARYNGEAL PAIN [None]
